FAERS Safety Report 7494729-9 (Version None)
Quarter: 2011Q2

REPORT INFORMATION
  Report Type: 
  Country: None (occurrence: None)
  Receive Date: 20110520
  Receipt Date: 20110513
  Transmission Date: 20111010
  Serious: Yes (Life-Threatening, Hospitalization)
  Sender: FDA-Public Use
  Company Number: GB-GENZYME-CAMP-1000243

PATIENT
  Sex: Female
  Weight: 63 kg

DRUGS (8)
  1. CHLORPHENIRAMINE MALEATE [Concomitant]
     Dosage: 5 MG, UNK
     Route: 042
     Dates: start: 20090403
  2. CHLORPHENIRAMINE MALEATE [Concomitant]
     Dosage: 10 MG, UNK
     Route: 042
     Dates: start: 20090403
  3. CAMPATH [Suspect]
     Indication: MULTIPLE SCLEROSIS
     Dosage: 12 MG, QD
     Route: 042
     Dates: start: 20090330, end: 20090402
  4. OMEPRAZOLE [Concomitant]
     Indication: DYSPEPSIA
     Dosage: 20 MG, UNK
     Dates: start: 20090401, end: 20090402
  5. ACETAMINOPHEN [Concomitant]
     Indication: PREMEDICATION
     Dosage: 1 G, UNK
     Route: 048
     Dates: start: 20090330, end: 20090402
  6. CHLORPHENIRAMINE MALEATE [Concomitant]
     Indication: PRODUCT USED FOR UNKNOWN INDICATION
     Dosage: 4 MG, PRN
     Route: 048
     Dates: start: 20090403
  7. ACETAMINOPHEN [Concomitant]
     Indication: PRODUCT USED FOR UNKNOWN INDICATION
     Dosage: 1 G, UNK
     Dates: start: 20090403
  8. CHLORPHENIRAMINE MALEATE [Concomitant]
     Indication: PREMEDICATION
     Dosage: 10 MG, UNK
     Route: 042
     Dates: start: 20090330, end: 20090402

REACTIONS (4)
  - ANGIOEDEMA [None]
  - THROAT TIGHTNESS [None]
  - URTICARIA [None]
  - CHEST DISCOMFORT [None]
